FAERS Safety Report 4498299-9 (Version None)
Quarter: 2004Q4

REPORT INFORMATION
  Report Type: 
  Country: None (occurrence: None)
  Receive Date: 20041109
  Receipt Date: 20041109
  Transmission Date: 20050328
  Serious: No
  Sender: FDA-Public Use
  Company Number: None

PATIENT
  Age: 47 Year
  Sex: Female
  Weight: 58.9676 kg

DRUGS (5)
  1. ZELNORM [Suspect]
     Indication: CONSTIPATION
     Dosage: 6MG TWICE DAILY ORAL
     Route: 048
     Dates: start: 20031022, end: 20040827
  2. ZELNORM [Suspect]
     Indication: IRRITABLE BOWEL SYNDROME
     Dosage: 6MG TWICE DAILY ORAL
     Route: 048
     Dates: start: 20031022, end: 20040827
  3. ATENOLOL [Concomitant]
  4. VERAPAMIL [Concomitant]
  5. BISOPROLOL FUMARATE [Concomitant]

REACTIONS (2)
  - COLITIS ULCERATIVE [None]
  - ERYTHEMA [None]
